FAERS Safety Report 4945281-0 (Version None)
Quarter: 2006Q1

REPORT INFORMATION
  Report Type: 
  Country: None (occurrence: None)
  Receive Date: 20060117
  Receipt Date: 20050825
  Transmission Date: 20060701
  Serious: Yes (Other)
  Sender: FDA-Public Use
  Company Number: 415901

PATIENT
  Age: 2 Year
  Sex: Female

DRUGS (5)
  1. ROCEPHIN [Suspect]
     Indication: MENINGITIS BACTERIAL
     Dosage: 600 MG 2 PER DAY INTRAVENOUS
     Route: 042
     Dates: start: 20050812, end: 20050824
  2. VANCOMYCIN HYDROCHLORIDE [Concomitant]
  3. ACETAMINOPHEN [Concomitant]
  4. TYLENOL WITH CODEINE (CAFFEINE/CODEINE PHOSPHATE/PARACETAMOL) [Concomitant]
  5. POTASSIUM CHLORIDE [Concomitant]

REACTIONS (3)
  - ALANINE AMINOTRANSFERASE INCREASED [None]
  - ASPARTATE AMINOTRANSFERASE INCREASED [None]
  - BLOOD ALKALINE PHOSPHATASE INCREASED [None]
